FAERS Safety Report 12112433 (Version 5)
Quarter: 2017Q1

REPORT INFORMATION
  Report Type: Spontaneous
  Country: US (occurrence: US)
  Receive Date: 20160225
  Receipt Date: 20170102
  Transmission Date: 20170428
  Serious: No
  Sender: FDA-Public Use
  Company Number: PHEH2016US004356

PATIENT
  Sex: Female
  Weight: 58.96 kg

DRUGS (2)
  1. ZOFRAN [Suspect]
     Active Substance: ONDANSETRON HYDROCHLORIDE
     Indication: VOMITING IN PREGNANCY
     Route: 065
     Dates: start: 199508, end: 199602
  2. ZOFRAN [Suspect]
     Active Substance: ONDANSETRON HYDROCHLORIDE
     Indication: VOMITING IN PREGNANCY
     Route: 042
     Dates: start: 199508, end: 199602

REACTIONS (5)
  - Emotional distress [Unknown]
  - Product use issue [Unknown]
  - Pain [Unknown]
  - Anxiety [Unknown]
  - Maternal exposure during pregnancy [Unknown]
